FAERS Safety Report 5013790-4 (Version None)
Quarter: 2006Q2

REPORT INFORMATION
  Report Type: 
  Country: None (occurrence: None)
  Receive Date: 20060526
  Receipt Date: 20060526
  Transmission Date: 20061013
  Serious: No
  Sender: FDA-Public Use
  Company Number: None

PATIENT
  Age: 24 Year
  Sex: Female

DRUGS (3)
  1. TOPROL-XL [Suspect]
     Dosage: TABLET
  2. TOPAMAX [Suspect]
     Dosage: TABLET
  3. . [Concomitant]

REACTIONS (3)
  - DRUG DISPENSING ERROR [None]
  - INAPPROPRIATE SCHEDULE OF DRUG ADMINISTRATION [None]
  - MEDICATION ERROR [None]
